FAERS Safety Report 20820017 (Version 2)
Quarter: 2022Q2

REPORT INFORMATION
  Report Type: Spontaneous
  Country: IT (occurrence: IT)
  Receive Date: 20220512
  Receipt Date: 20220519
  Transmission Date: 20220721
  Serious: Yes (Other)
  Sender: FDA-Public Use
  Company Number: IT-TEVA-2022-IT-2034788

PATIENT
  Age: 27 Year
  Sex: Male

DRUGS (8)
  1. SUMATRIPTAN [Suspect]
     Active Substance: SUMATRIPTAN
     Indication: Migraine
     Dosage: DOSE: 6 MG/0.5ML
     Route: 058
  2. SUMATRIPTAN [Suspect]
     Active Substance: SUMATRIPTAN
     Indication: Cluster headache
  3. VALPROIC ACID [Suspect]
     Active Substance: VALPROIC ACID
     Indication: Migraine
     Route: 065
  4. PROPRANOLOL [Suspect]
     Active Substance: PROPRANOLOL HYDROCHLORIDE
     Indication: Migraine
     Route: 065
  5. FLUNARIZINE [Suspect]
     Active Substance: FLUNARIZINE
     Indication: Migraine
     Route: 065
  6. AMITRIPTYLINE [Suspect]
     Active Substance: AMITRIPTYLINE
     Indication: Migraine
     Route: 065
  7. TOPIRAMATE [Suspect]
     Active Substance: TOPIRAMATE
     Indication: Migraine
     Route: 065
  8. ONABOTULINUMTOXINA [Suspect]
     Active Substance: ONABOTULINUMTOXINA
     Indication: Migraine
     Route: 065

REACTIONS (3)
  - Paraesthesia [Unknown]
  - Chest discomfort [Unknown]
  - Drug ineffective [Unknown]
